FAERS Safety Report 8170876-3 (Version None)
Quarter: 2012Q1

REPORT INFORMATION
  Report Type: 
  Country: None (occurrence: None)
  Receive Date: 20120228
  Receipt Date: 20120217
  Transmission Date: 20120608
  Serious: Yes (Hospitalization)
  Sender: FDA-Public Use
  Company Number: KR-SANOFI-AVENTIS-2011SA080674

PATIENT
  Age: 65 Year
  Sex: Male
  Weight: 80 kg

DRUGS (11)
  1. ALL OTHER THERAPEUTIC PRODUCTS [Concomitant]
     Dosage: 1 T
     Dates: start: 19860101
  2. SITAGLIPTIN PHOSPHATE [Concomitant]
     Dates: start: 19910101
  3. CARVEDILOL [Concomitant]
     Dates: start: 19860101
  4. CILOSTAZOL [Concomitant]
     Dates: start: 20070501
  5. UNSPECIFIED HERBAL [Suspect]
     Indication: SUPPORTIVE CARE
     Route: 048
     Dates: start: 20110801, end: 20110930
  6. VITAMINS NOS [Concomitant]
     Dosage: 1 T
     Dates: start: 20110728
  7. LEUPROLIDE ACETATE [Suspect]
     Route: 065
     Dates: start: 20110811
  8. CHOLINE ALFOSCERATE [Concomitant]
     Dates: start: 20070501
  9. ALL OTHER THERAPEUTIC PRODUCTS [Concomitant]
     Dosage: 1T
     Dates: start: 20070501
  10. LEUPROLIDE ACETATE [Suspect]
     Route: 065
     Dates: start: 20111010
  11. METFORMIN HCL [Concomitant]
     Dates: start: 19910101

REACTIONS (1)
  - HEPATITIS ACUTE [None]
